FAERS Safety Report 9024474 (Version 1)
Quarter: 2013Q1

REPORT INFORMATION
  Report Type: Spontaneous
  Country: DE (occurrence: DE)
  Receive Date: 20130121
  Receipt Date: 20130121
  Transmission Date: 20140127
  Serious: Yes (Death, Life-Threatening, Hospitalization, Other)
  Sender: FDA-Public Use
  Company Number: DE-JNJFOC-20120713711

PATIENT
  Age: 87 None
  Sex: Female
  Weight: 65 kg

DRUGS (5)
  1. XARELTO [Suspect]
     Indication: CEREBROVASCULAR ACCIDENT PROPHYLAXIS
     Route: 048
     Dates: start: 201204, end: 20120630
  2. XARELTO [Suspect]
     Indication: ATRIAL FIBRILLATION
     Route: 048
     Dates: start: 201204, end: 20120630
  3. BISOPROLOL [Concomitant]
     Route: 065
  4. TORASEMID [Concomitant]
     Route: 065
  5. RAMIPRIL [Concomitant]
     Route: 065

REACTIONS (5)
  - Cerebral haemorrhage [Fatal]
  - Subdural haemorrhage [Unknown]
  - Fall [Unknown]
  - Subdural haemorrhage [Unknown]
  - Transient ischaemic attack [Unknown]
